FAERS Safety Report 7564152-7 (Version None)
Quarter: 2011Q2

REPORT INFORMATION
  Report Type: 
  Country: None (occurrence: None)
  Receive Date: 20110622
  Receipt Date: 20110617
  Transmission Date: 20111010
  Serious: Yes (Life-Threatening, Hospitalization)
  Sender: FDA-Public Use
  Company Number: FR-PFIZER INC-2011085901

PATIENT
  Age: 37 Year
  Sex: Male

DRUGS (1)
  1. DICLOFENAC SODIUM [Suspect]
     Indication: BACK PAIN
     Dosage: 1 DF, SINGLE
     Route: 048
     Dates: start: 20110322, end: 20110322

REACTIONS (7)
  - CHILLS [None]
  - OXYGEN SATURATION ABNORMAL [None]
  - CHEST PAIN [None]
  - ANAPHYLACTIC SHOCK [None]
  - PARAESTHESIA [None]
  - HYPOTENSION [None]
  - RENAL FAILURE ACUTE [None]
